FAERS Safety Report 16913564 (Version 2)
Quarter: 2019Q4

REPORT INFORMATION
  Report Type: Spontaneous
  Country: GB (occurrence: GB)
  Receive Date: 20191014
  Receipt Date: 20191211
  Transmission Date: 20200122
  Serious: Yes (Disabling)
  Sender: FDA-Public Use
  Company Number: GB-ACCORD-157415

PATIENT
  Age: 76 Year
  Sex: Male

DRUGS (13)
  1. PARAFFIN/LIQUID/WHITE SOFT PARAFFIN/WOOL FAT [Suspect]
     Active Substance: LANOLIN\PARAFFIN
     Indication: PRODUCT USED FOR UNKNOWN INDICATION
     Dosage: APPLY
     Route: 061
  2. SILDENAFIL/SILDENAFIL CITRATE [Suspect]
     Active Substance: SILDENAFIL CITRATE
     Indication: PULMONARY HYPERTENSION
     Dosage: 75 MG, QD
     Route: 048
  3. LANSOPRAZOLE. [Suspect]
     Active Substance: LANSOPRAZOLE
     Indication: PRODUCT USED FOR UNKNOWN INDICATION
     Dosage: EACH MORNING, 30 MG, QD
     Route: 048
  4. ATORVASTATIN/ATORVASTATIN CALCIUM [Suspect]
     Active Substance: ATORVASTATIN CALCIUM
     Indication: PROPHYLAXIS
     Dosage: AT NIGHT, 80 MG, QD
     Route: 048
  5. CARVEDILOL/CARVEDILOL HYDROCHLODRIDE [Suspect]
     Active Substance: CARVEDILOL HYDROCHLORIDE
     Indication: EJECTION FRACTION DECREASED
     Dosage: 6.25 MG, QD
     Route: 048
  6. PARAFFIN/LIQUID/WHITE SOFT PARAFFIN/WOOL FAT [Suspect]
     Active Substance: LANOLIN\PARAFFIN
     Indication: PRODUCT USED FOR UNKNOWN INDICATION
     Dosage: APPLY
     Route: 061
  7. SPIRONOLACTONE. [Suspect]
     Active Substance: SPIRONOLACTONE
     Indication: EJECTION FRACTION DECREASED
     Dosage: EACH MORNING, 25 MG, QD
     Route: 048
  8. IRON [Suspect]
     Active Substance: IRON
     Indication: HAEMOGLOBIN DECREASED
     Dosage: 600 MG, QD
     Route: 048
  9. AMLODIPINE [Suspect]
     Active Substance: AMLODIPINE BESYLATE
     Indication: PRODUCT USED FOR UNKNOWN INDICATION
     Dosage: EACH MORNING, 10 MG, QD
     Route: 048
  10. DOXAZOSIN [Suspect]
     Active Substance: DOXAZOSIN MESYLATE
     Indication: HYPERTENSION
     Dosage: EACH MORNING, 4 MG, QD
     Route: 048
  11. APIXABAN [Suspect]
     Active Substance: APIXABAN
     Indication: ATRIAL FIBRILLATION
     Dosage: 10 MG, QD
     Route: 048
  12. SANDO K (POTASSIUM CHLORIDE) [Suspect]
     Active Substance: POTASSIUM CHLORIDE
     Indication: BLOOD POTASSIUM DECREASED
     Dosage: QD
     Route: 048
  13. BUMETANIDE. [Suspect]
     Active Substance: BUMETANIDE
     Indication: FLUID OVERLOAD
     Dosage: 2MG EACH MORNING AND 1MG BEFORE LUNCH, 3 MG, QD
     Route: 048

REACTIONS (3)
  - Pain [Not Recovered/Not Resolved]
  - Intentional product use issue [Unknown]
  - Rash [Not Recovered/Not Resolved]

NARRATIVE: CASE EVENT DATE: 20190921
